FAERS Safety Report 7637199-X (Version None)
Quarter: 2011Q3

REPORT INFORMATION
  Report Type: 
  Country: None (occurrence: None)
  Receive Date: 20110726
  Receipt Date: 20110712
  Transmission Date: 20111222
  Serious: Yes (Other)
  Sender: FDA-Public Use
  Company Number: PHHY2011KR65360

PATIENT

DRUGS (7)
  1. SERRATIOPEPTIDASE [Concomitant]
     Dosage: UNK UKN, UNK
  2. ALMAGATE [Concomitant]
     Dosage: UNK UKN, UNK
  3. LOXOPROFEN [Concomitant]
     Dosage: UNK UKN, UNK
  4. ACETAMINOPHEN [Concomitant]
     Dosage: UNK UKN, UNK
  5. CARBAMAZEPINE [Suspect]
     Dosage: UNK UKN, UNK
  6. LEVOCETIRIZINE DIHYDROCHLORIDE [Concomitant]
     Dosage: UNK UKN, UNK
  7. NORTRIPTYLINE HCL [Concomitant]
     Dosage: UNK UKN, UNK
     Route: 065

REACTIONS (5)
  - TONGUE DISCOLOURATION [None]
  - OROPHARYNGEAL PAIN [None]
  - PYREXIA [None]
  - CARPAL TUNNEL SYNDROME [None]
  - EYE PAIN [None]
